FAERS Safety Report 23218343 (Version 1)
Quarter: 2023Q4

REPORT INFORMATION
  Report Type: Spontaneous
  Country: US (occurrence: None)
  Receive Date: 20231121
  Receipt Date: 20231121
  Transmission Date: 20240110
  Serious: Yes (Hospitalization, Disabling)
  Sender: FDA-Public Use
  Company Number: None

PATIENT
  Age: 51 Year
  Sex: Male
  Weight: 70.31 kg

DRUGS (1)
  1. BIKTARVY [Suspect]
     Active Substance: BICTEGRAVIR SODIUM\EMTRICITABINE\TENOFOVIR ALAFENAMIDE FUMARATE
     Indication: HIV infection
     Dosage: OTHER QUANTITY : 1 TOT;?FREQUENCY : DAILY;?
     Route: 048
     Dates: start: 20211203

REACTIONS (5)
  - Muscular weakness [None]
  - Bone pain [None]
  - Chromaturia [None]
  - Muscle atrophy [None]
  - Fatigue [None]

NARRATIVE: CASE EVENT DATE: 20231121
